FAERS Safety Report 8981778 (Version 3)
Quarter: 2013Q4

REPORT INFORMATION
  Report Type: Spontaneous
  Country: IT (occurrence: IT)
  Receive Date: 20121223
  Receipt Date: 20131212
  Transmission Date: 20140711
  Serious: Yes (Other)
  Sender: FDA-Public Use
  Company Number: PHHY2012IT118309

PATIENT
  Sex: Female

DRUGS (2)
  1. ZOMETA [Suspect]
     Indication: BREAST CANCER STAGE IV
     Dosage: UNK UKN, UNK
     Route: 042
     Dates: start: 200309, end: 20041201
  2. ZOMETA [Suspect]
     Dosage: 4 MG, QMO
     Route: 042
     Dates: start: 20050701, end: 20050801

REACTIONS (1)
  - Osteonecrosis of jaw [Not Recovered/Not Resolved]
